FAERS Safety Report 7478767-8 (Version None)
Quarter: 2011Q2

REPORT INFORMATION
  Report Type: 
  Country: None (occurrence: None)
  Receive Date: 20110513
  Receipt Date: 20110511
  Transmission Date: 20111010
  Serious: Yes (Life-Threatening, Other)
  Sender: FDA-Public Use
  Company Number: US-MILLENNIUM PHARMACEUTICALS, INC.-2011-01918

PATIENT
  Sex: Female
  Weight: 85.5 kg

DRUGS (15)
  1. CYCLOSPORINE [Suspect]
     Indication: MULTIPLE MYELOMA
     Dosage: UNK
  2. FLUDARABINE PHOSPHATE [Suspect]
     Indication: MULTIPLE MYELOMA
  3. MELPHALAN HYDROCHLORIDE [Suspect]
     Indication: MULTIPLE MYELOMA
  4. BECLOMETHASONE [Concomitant]
     Indication: GRAFT VERSUS HOST DISEASE
     Dosage: 1 ML, QID
  5. VALTREX [Concomitant]
     Indication: CYTOMEGALOVIRUS HEPATITIS
     Dosage: UNK MG, BID
  6. PROTONIX [Concomitant]
     Indication: GASTROOESOPHAGEAL REFLUX DISEASE
     Dosage: UNK
  7. PREDNISONE TAB [Concomitant]
     Indication: GRAFT VERSUS HOST DISEASE
     Dosage: 100 MG, UNK
     Dates: start: 20110420
  8. DAPSONE [Concomitant]
     Indication: PRODUCT USED FOR UNKNOWN INDICATION
     Dosage: UNK MG, BID
  9. NORVASC [Concomitant]
     Indication: HYPERTENSION
     Dosage: 5 MG, QD
  10. MYCOPHENOLATE MOFETIL [Suspect]
     Indication: MULTIPLE MYELOMA
  11. VORICONAZOLE [Concomitant]
     Indication: PROPHYLAXIS
     Dosage: UNK
  12. MAGNESIUM [Concomitant]
     Indication: PRODUCT USED FOR UNKNOWN INDICATION
     Dosage: 400 MG, BID
  13. VELCADE [Suspect]
     Indication: MULTIPLE MYELOMA
     Dosage: UNK MG/M2, UNK
     Dates: start: 20110303, end: 20110330
  14. AZITHROMYCIN [Concomitant]
     Indication: PROPHYLAXIS
     Dosage: UNK MG, QD
  15. MS CONTIN [Concomitant]
     Indication: PRODUCT USED FOR UNKNOWN INDICATION
     Dosage: 60 MG, BID

REACTIONS (2)
  - INFECTION [None]
  - SYNCOPE [None]
